FAERS Safety Report 4525668-0 (Version None)
Quarter: 2004Q4

REPORT INFORMATION
  Report Type: 
  Country: None (occurrence: None)
  Receive Date: 20041116
  Receipt Date: 20040928
  Transmission Date: 20050328
  Serious: No
  Sender: FDA-Public Use
  Company Number: S04-USA-06741-01

PATIENT
  Age: 84 Year
  Sex: Female

DRUGS (9)
  1. NAMENDA [Suspect]
     Indication: CONFUSIONAL STATE
     Dosage: 5 MG BID PO
     Route: 048
     Dates: start: 20040901, end: 20040901
  2. NAMENDA [Suspect]
     Indication: CONFUSIONAL STATE
     Dosage: 15 MG QD PO
     Route: 048
     Dates: start: 20040901, end: 20040901
  3. NAMENDA [Suspect]
     Indication: CONFUSIONAL STATE
     Dosage: 20 MG QD PO
     Route: 048
     Dates: start: 20040901
  4. NAMENDA [Suspect]
     Indication: CONFUSIONAL STATE
     Dosage: 5 MG QD PO
     Route: 048
     Dates: start: 20040901, end: 20040901
  5. ARICEPT [Concomitant]
  6. ZOLOFT [Concomitant]
  7. NORVASC [Concomitant]
  8. PRAVACHOL [Concomitant]
  9. ALDACTAZIDE [Concomitant]

REACTIONS (3)
  - AGITATION [None]
  - CONFUSIONAL STATE [None]
  - INSOMNIA [None]
